FAERS Safety Report 9904247 (Version 3)
Quarter: 2014Q1

REPORT INFORMATION
  Report Type: Report from Study
  Country: BR (occurrence: BR)
  Receive Date: 20140218
  Receipt Date: 20140303
  Transmission Date: 20141002
  Serious: Yes (Other)
  Sender: FDA-Public Use
  Company Number: BR-ROCHE-1347641

PATIENT
  Age: 80 Year
  Sex: Male
  Weight: 71.5 kg

DRUGS (12)
  1. VISMODEGIB [Suspect]
     Indication: BASAL CELL CARCINOMA
     Dosage: LAST DOSE PRIOR TO AE: 08/JAN/2014
     Route: 048
     Dates: start: 20130926
  2. LOSARTAN [Concomitant]
     Indication: HYPERTENSION
     Route: 065
     Dates: start: 198301
  3. ATENOLOL [Concomitant]
     Indication: HYPERTENSION
     Route: 065
     Dates: start: 198301, end: 20131004
  4. ATENOLOL [Concomitant]
     Route: 065
     Dates: start: 20131230
  5. LACRIMA PLUS [Concomitant]
     Indication: CATARACT
     Dosage: ONE DROP IN EACH EYE.
     Route: 065
     Dates: start: 201001
  6. ANADOR [Concomitant]
     Indication: EYE PAIN
     Route: 065
     Dates: start: 201308, end: 20131010
  7. MONOCORDIL [Concomitant]
     Indication: ACUTE MYOCARDIAL INFARCTION
     Route: 065
     Dates: start: 200910
  8. ACETYLSALICYLIC ACID [Concomitant]
     Indication: THROMBOSIS
     Route: 065
     Dates: start: 200910
  9. HYDROCHLOROTHIAZIDE [Concomitant]
     Indication: HYPERTENSION
     Route: 065
     Dates: start: 20130919, end: 20131117
  10. ATORVASTATIN [Concomitant]
     Indication: HYPERTENSION
     Route: 065
     Dates: start: 200910, end: 20131117
  11. SIMVASTATIN [Concomitant]
     Indication: ACUTE MYOCARDIAL INFARCTION
     Route: 065
     Dates: start: 20131123, end: 20131210
  12. GABAPENTIN [Concomitant]
     Indication: MUSCLE SPASMS
     Route: 065
     Dates: start: 20140111, end: 20140201

REACTIONS (1)
  - Squamous cell carcinoma [Recovered/Resolved]
